FAERS Safety Report 24437750 (Version 1)
Quarter: 2024Q4

REPORT INFORMATION
  Report Type: Spontaneous
  Country: US (occurrence: None)
  Receive Date: 20241011
  Receipt Date: 20241011
  Transmission Date: 20250114
  Serious: Yes (Disabling)
  Sender: Public
  Company Number: None

PATIENT
  Age: 62 Year
  Sex: Female
  Weight: 45 kg

DRUGS (1)
  1. FINASTERIDE [Suspect]
     Active Substance: FINASTERIDE
     Indication: Alopecia
     Dosage: OTHER QUANTITY : 1 TABLET(S);?
     Route: 048
     Dates: start: 19941011, end: 20221011

REACTIONS (6)
  - Lipoatrophy [None]
  - Dry skin [None]
  - Skin wrinkling [None]
  - Skin texture abnormal [None]
  - Alopecia [None]
  - Loss of libido [None]

NARRATIVE: CASE EVENT DATE: 20151014
